FAERS Safety Report 9928948 (Version 1)
Quarter: 2014Q1

REPORT INFORMATION
  Report Type: Spontaneous
  Country: US (occurrence: None)
  Receive Date: 20140224
  Receipt Date: 20140224
  Transmission Date: 20141002
  Serious: Yes (Hospitalization)
  Sender: FDA-Public Use
  Company Number: UTC-044820

PATIENT
  Age: 63 Year
  Sex: Female
  Weight: 70.45 kg

DRUGS (1)
  1. TYVASO (6 MICROGRAM, AEROSOL FOR INHALATION) (TREPROSTINIL SODIUM) [Suspect]
     Indication: COR PULMONALE CHRONIC
     Route: 055
     Dates: start: 20110217

REACTIONS (5)
  - Haemorrhage [None]
  - Dyspnoea [None]
  - Chest pain [None]
  - Anaemia [None]
  - Nasal congestion [None]
